FAERS Safety Report 6030515-4 (Version None)
Quarter: 2008Q4

REPORT INFORMATION
  Report Type: 
  Country: None (occurrence: None)
  Receive Date: 20081222
  Receipt Date: 20081113
  Transmission Date: 20090506
  Serious: Yes (Other)
  Sender: FDA-Public Use
  Company Number: US-WYE-H06841208

PATIENT
  Age: 79 Year
  Sex: Female
  Weight: 89.89 kg

DRUGS (5)
  1. PRISTIQ [Suspect]
     Indication: DEPRESSION
     Dosage: 50 MG 1X PER 1 DAY,ORAL
     Route: 048
     Dates: start: 20081112
  2. DIAZEPAM [Concomitant]
  3. BENICAR [Concomitant]
  4. CELEBREX [Concomitant]
  5. ZEGERID [Concomitant]

REACTIONS (2)
  - DYSPNOEA [None]
  - NAUSEA [None]
